FAERS Safety Report 12632980 (Version 1)
Quarter: 2016Q3

REPORT INFORMATION
  Report Type: Spontaneous
  Country: None (occurrence: None)
  Receive Date: 20160808
  Receipt Date: 20160808
  Transmission Date: 20161109
  Serious: Yes (Other)
  Sender: FDA-Public Use
  Company Number: None

PATIENT
  Age: 40 Year
  Sex: Female
  Weight: 50 kg

DRUGS (3)
  1. VITAMIN D [Concomitant]
     Active Substance: CHOLECALCIFEROL
  2. CITALOPRAM 10 MG, 10 MG [Suspect]
     Active Substance: CITALOPRAM HYDROBROMIDE
     Indication: DEPRESSION
     Route: 048
     Dates: start: 20150209, end: 20160726
  3. OMEA 3 CAPSULES [Concomitant]

REACTIONS (6)
  - Anxiety [None]
  - Nausea [None]
  - Depression [None]
  - Dizziness [None]
  - Headache [None]
  - Confusional state [None]

NARRATIVE: CASE EVENT DATE: 20160804
